FAERS Safety Report 8775906 (Version 1)
Quarter: 2012Q4

REPORT INFORMATION
  Report Type: 
  Country: GB (occurrence: GB)
  Receive Date: 20120910
  Receipt Date: 20120910
  Transmission Date: 20130627
  Serious: Yes (Hospitalization)
  Sender: FDA-Public Use
  Company Number: GB-ROCHE-1119856

PATIENT
  Age: 46 Year
  Sex: Male
  Weight: 105 kg

DRUGS (6)
  1. PEGASYS [Suspect]
     Indication: HEPATITIS C
     Route: 058
     Dates: start: 20120217, end: 20120327
  2. TELAPREVIR [Suspect]
     Indication: HEPATITIS C
     Route: 048
     Dates: start: 20120217, end: 20120327
  3. RIBAVIRIN [Suspect]
     Indication: HEPATITIS C
     Route: 048
     Dates: start: 20120217, end: 20120327
  4. FILGRASTIM [Concomitant]
     Indication: NEUTROPENIA
     Dosage: 1 days
     Route: 065
     Dates: start: 20120308, end: 20120326
  5. FUROSEMIDE [Concomitant]
     Indication: OEDEMA
     Dosage: 1 days
     Route: 048
  6. SPIRONOLACTONE [Concomitant]
     Indication: OEDEMA
     Dosage: 1 days
     Route: 048

REACTIONS (6)
  - Ascites [Recovered/Resolved]
  - Hepatic cirrhosis [Unknown]
  - Hepatic failure [Unknown]
  - Neutropenia [Unknown]
  - Oedema peripheral [Recovered/Resolved]
  - Platelet count decreased [None]
